FAERS Safety Report 14635646 (Version 1)
Quarter: 2018Q1

REPORT INFORMATION
  Report Type: Spontaneous
  Country: AU (occurrence: AU)
  Receive Date: 20180314
  Receipt Date: 20180314
  Transmission Date: 20180509
  Serious: Yes (Hospitalization)
  Sender: FDA-Public Use
  Company Number: PHHY2018AU034701

PATIENT
  Age: 67 Year
  Sex: Female

DRUGS (2)
  1. METHOTREXATE. [Suspect]
     Active Substance: METHOTREXATE
     Indication: BREAST CANCER
     Dosage: 12 MG, ONCE/SINGLE
     Route: 016
  2. METHOTREXATE. [Suspect]
     Active Substance: METHOTREXATE
     Indication: METASTASES TO MENINGES

REACTIONS (6)
  - Hemiplegia [Recovering/Resolving]
  - Meningitis aseptic [Unknown]
  - Neurotoxicity [Unknown]
  - Confusional state [Recovering/Resolving]
  - Somnolence [Unknown]
  - Pleocytosis [Unknown]
